FAERS Safety Report 8837087 (Version 2)
Quarter: 2012Q4

REPORT INFORMATION
  Report Type: 
  Country: US (occurrence: US)
  Receive Date: 20121011
  Receipt Date: 20121207
  Transmission Date: 20130627
  Serious: Yes (Hospitalization)
  Sender: FDA-Public Use
  Company Number: CHPA2012US021264

PATIENT
  Age: 58 Year
  Sex: Female

DRUGS (2)
  1. BENEFIBER SUGAR FREE [Suspect]
     Indication: SUPPLEMENTATION THERAPY
     Dosage: 3-4 pills twice per day
     Route: 048
  2. LEVAQUIN [Concomitant]

REACTIONS (6)
  - Diverticulitis [Not Recovered/Not Resolved]
  - Pain [Not Recovered/Not Resolved]
  - Pyrexia [Recovered/Resolved]
  - Malaise [Not Recovered/Not Resolved]
  - Therapeutic response unexpected [Unknown]
  - Incorrect dose administered [Unknown]
